FAERS Safety Report 17386488 (Version 1)
Quarter: 2020Q1

REPORT INFORMATION
  Report Type: Spontaneous
  Country: US (occurrence: US)
  Receive Date: 20200206
  Receipt Date: 20200206
  Transmission Date: 20200409
  Serious: Yes (Hospitalization)
  Sender: FDA-Public Use
  Company Number: US-ASTRAZENECA-2020SE16334

PATIENT
  Age: 52 Year
  Sex: Female

DRUGS (2)
  1. PHENAZOPYRIPINE [Concomitant]
     Dates: start: 20200127, end: 20200128
  2. LYNPARZA [Suspect]
     Active Substance: OLAPARIB
     Indication: BREAST CANCER
     Route: 048
     Dates: start: 20200102

REACTIONS (2)
  - Chromaturia [Unknown]
  - Urinary sediment [Unknown]

NARRATIVE: CASE EVENT DATE: 20200128
